FAERS Safety Report 17448784 (Version 1)
Quarter: 2020Q1

REPORT INFORMATION
  Report Type: Spontaneous
  Country: US (occurrence: US)
  Receive Date: 20200224
  Receipt Date: 20200224
  Transmission Date: 20200409
  Serious: Yes (Hospitalization, Other)
  Sender: FDA-Public Use
  Company Number: US-DEXPHARM-20200138

PATIENT
  Age: 58 Year
  Sex: Male
  Weight: 107.03 kg

DRUGS (4)
  1. FENOFIBRAT [Concomitant]
     Active Substance: FENOFIBRATE
     Indication: BLOOD CHOLESTEROL INCREASED
     Dosage: UNK
     Dates: start: 2010
  2. OMEPRAZOLE DELAYED RELEASE TABLETS 20 MG [Suspect]
     Active Substance: OMEPRAZOLE
     Indication: DYSPEPSIA
     Dosage: 20 MG, SINGLE
     Route: 048
     Dates: start: 20200213, end: 20200213
  3. PEPCID [Concomitant]
     Active Substance: FAMOTIDINE
     Indication: DYSPEPSIA
     Dosage: UNK
     Route: 065
     Dates: start: 20200208, end: 20200813
  4. OMEPRAZOLE DELAYED RELEASE TABLETS 20 MG [Suspect]
     Active Substance: OMEPRAZOLE
     Indication: DYSPEPSIA
     Dosage: DAILY DOSE: 40 MG MILLGRAM(S) EVERY DAYS
     Route: 048
     Dates: start: 20200205, end: 20200207

REACTIONS (1)
  - Chest pain [Not Recovered/Not Resolved]

NARRATIVE: CASE EVENT DATE: 20200205
